FAERS Safety Report 5831035-X (Version None)
Quarter: 2008Q3

REPORT INFORMATION
  Report Type: 
  Country: None (occurrence: None)
  Receive Date: 20080801
  Receipt Date: 20080312
  Transmission Date: 20090109
  Serious: Yes (Death)
  Sender: FDA-Public Use
  Company Number: US-BRISTOL-MYERS SQUIBB COMPANY-14113344

PATIENT
  Age: 89 Year
  Sex: Male

DRUGS (6)
  1. COUMADIN [Suspect]
     Indication: CARDIAC FAILURE
     Dosage: 5MG ON MON, WED, FRI AND 7.5MG ON ALTERNATING DAYS.
  2. PREDNISONE [Concomitant]
  3. POTASSIUM CHLORIDE [Concomitant]
  4. LASIX [Concomitant]
  5. NEXIUM [Concomitant]
  6. TYLENOL [Concomitant]

REACTIONS (1)
  - CEREBROVASCULAR ACCIDENT [None]
